FAERS Safety Report 8843413 (Version 1)
Quarter: 2012Q4

REPORT INFORMATION
  Report Type: 
  Country: US (occurrence: US)
  Receive Date: 20121016
  Receipt Date: 20121016
  Transmission Date: 20130627
  Serious: Yes (Other)
  Sender: FDA-Public Use
  Company Number: US-ARROW-2012-17172

PATIENT
  Age: 59 Year
  Sex: Male
  Weight: 104 kg

DRUGS (7)
  1. RAPAFLO (WATSON LABORATORIES) [Suspect]
     Indication: BLADDER DISORDER
     Dosage: UNK
     Route: 065
     Dates: start: 2009
  2. OXYBUTYNIN CHLORIDE [Suspect]
     Indication: BLADDER DISORDER
     Dosage: Applies every morning
     Route: 061
     Dates: start: 2009
  3. AMLODIPINE [Suspect]
     Indication: BLOOD PRESSURE
     Dosage: 5 mg daily
     Route: 048
     Dates: end: 201201
  4. AMLODIPIN [Suspect]
     Dosage: 10 mg daily
     Route: 048
     Dates: start: 201201
  5. ANDROGEL [Suspect]
     Indication: PRODUCT USED FOR UNKNOWN INDICATION
     Dosage: 2 pumps daily
     Route: 065
     Dates: start: 201109
  6. ANDROGEL [Suspect]
     Dosage: 3 pumps daily
  7. ANDROGEL [Suspect]
     Dosage: 4 pumps per day

REACTIONS (13)
  - Large intestine polyp [Unknown]
  - Frequent bowel movements [Unknown]
  - Sleep apnoea syndrome [Unknown]
  - Defaecation urgency [Unknown]
  - Micturition urgency [Unknown]
  - Abdominal pain upper [Unknown]
  - Abdominal pain [Unknown]
  - Nervousness [Unknown]
  - Radiation injury [Unknown]
  - Drug interaction [Unknown]
  - Irritable bowel syndrome [Unknown]
  - Crohn^s disease [Unknown]
  - Blood pressure increased [None]
